FAERS Safety Report 6040598-3 (Version None)
Quarter: 2009Q1

REPORT INFORMATION
  Report Type: 
  Country: None (occurrence: None)
  Receive Date: 20090116
  Receipt Date: 20080414
  Transmission Date: 20090719
  Serious: No
  Sender: FDA-Public Use
  Company Number: US-BRISTOL-MYERS SQUIBB COMPANY-14150387

PATIENT
  Age: 18 Year
  Sex: Male

DRUGS (1)
  1. ABILIFY [Suspect]
     Indication: AFFECTIVE DISORDER
     Dosage: 1 DOSAGE FORM = 7.5 HS
     Route: 048
     Dates: start: 20061201, end: 20080201

REACTIONS (1)
  - TARDIVE DYSKINESIA [None]
